FAERS Safety Report 24194556 (Version 1)
Quarter: 2024Q3

REPORT INFORMATION
  Report Type: Report from Study
  Country: JP (occurrence: JP)
  Receive Date: 20240809
  Receipt Date: 20240809
  Transmission Date: 20241017
  Serious: Yes (Hospitalization)
  Sender: AEGERION
  Company Number: JP-AMRYT PHARMACEUTICALS DAC-AEGR006737

PATIENT

DRUGS (5)
  1. JUXTAPID [Suspect]
     Active Substance: LOMITAPIDE MESYLATE
     Indication: Type IIa hyperlipidaemia
     Dosage: UNK
  2. JUXTAPID [Suspect]
     Active Substance: LOMITAPIDE MESYLATE
     Dosage: 40 MILLIGRAM (TWO HOURS AFTER DINNER)
     Dates: start: 20190918
  3. PEMAFIBRATE [Concomitant]
     Active Substance: PEMAFIBRATE
     Indication: Hypercholesterolaemia
     Dosage: 0.1 MILLIGRAM, QD
     Route: 048
     Dates: start: 20190612
  4. WARFARIN POTASSIUM [Concomitant]
     Active Substance: WARFARIN POTASSIUM
     Indication: Prophylaxis
     Dosage: 4 MILLIGRAM, QD
     Route: 048
     Dates: start: 20190710, end: 20190910
  5. WARFARIN POTASSIUM [Concomitant]
     Active Substance: WARFARIN POTASSIUM
     Dosage: 4.29 MILLIGRAM, QD
     Route: 048
     Dates: start: 20191109

REACTIONS (4)
  - Unevaluable event [Unknown]
  - Myalgia [Unknown]
  - Electrocardiogram T wave abnormal [Unknown]
  - Therapeutic product effect incomplete [Unknown]

NARRATIVE: CASE EVENT DATE: 20190101
